FAERS Safety Report 18694749 (Version 2)
Quarter: 2021Q3

REPORT INFORMATION
  Report Type: Spontaneous
  Country: US (occurrence: US)
  Receive Date: 20210104
  Receipt Date: 20210930
  Transmission Date: 20211014
  Serious: Yes (Death, Other)
  Sender: FDA-Public Use
  Company Number: US-GLENMARK PHARMACEUTICALS-2020GMK051440

PATIENT
  Age: 61 Year
  Sex: Female

DRUGS (5)
  1. PREDNISONE. [Suspect]
     Active Substance: PREDNISONE
     Indication: IMMUNOSUPPRESSION
     Dosage: UNK (LOW?DOSE)
     Route: 065
  2. SULFAMETHOXAZOLE/TRIMETHOPRIM [Suspect]
     Active Substance: SULFAMETHOXAZOLE\TRIMETHOPRIM
     Indication: ANTIFUNGAL PROPHYLAXIS
     Dosage: UNK
     Route: 065
  3. ACYCLOVIR [ACICLOVIR] [Concomitant]
     Active Substance: ACYCLOVIR
     Indication: ANTIVIRAL PROPHYLAXIS
     Dosage: UNK
     Route: 065
  4. MYCOPHENOLIC ACID. [Suspect]
     Active Substance: MYCOPHENOLIC ACID
     Indication: IMMUNOSUPPRESSION
     Dosage: UNK
     Route: 065
  5. TACROLIMUS. [Suspect]
     Active Substance: TACROLIMUS
     Indication: IMMUNOSUPPRESSION
     Dosage: UNK (ROUGH 12.2 NG/ML)
     Route: 065

REACTIONS (6)
  - Toxoplasmosis [Fatal]
  - Renal impairment [Unknown]
  - Acute kidney injury [Unknown]
  - Acute hepatic failure [Unknown]
  - Cytomegalovirus infection [Recovered/Resolved]
  - Cytomegalovirus hepatitis [Recovered/Resolved]
